FAERS Safety Report 4449859-2 (Version None)
Quarter: 2004Q3

REPORT INFORMATION
  Report Type: 
  Country: None (occurrence: None)
  Receive Date: 20040915
  Receipt Date: 20040907
  Transmission Date: 20050211
  Serious: Yes (Death)
  Sender: FDA-Public Use
  Company Number: CA-JNJFOC-20040902726

PATIENT
  Sex: Male

DRUGS (5)
  1. RISPERDAL CONSTA [Suspect]
     Indication: SCHIZOPHRENIA
     Route: 030
  2. CLONAZEPAM [Concomitant]
     Indication: ANXIETY
     Route: 049
  3. ZOPLICONE [Concomitant]
     Indication: INSOMNIA
     Route: 049
  4. BENZTROPINE MESYLATE [Concomitant]
     Route: 049
  5. CITALOPRAM [Concomitant]
     Indication: DEPRESSION

REACTIONS (1)
  - CHOKING [None]
